FAERS Safety Report 20188669 (Version 2)
Quarter: 2021Q4

REPORT INFORMATION
  Report Type: Report from Study
  Country: CA (occurrence: CA)
  Receive Date: 20211215
  Receipt Date: 20211222
  Transmission Date: 20220303
  Serious: Yes (Other)
  Sender: FDA-Public Use
  Company Number: CA-JNJFOC-20211223787

PATIENT
  Age: 27 Year
  Sex: Female
  Weight: 68.2 kg

DRUGS (1)
  1. REMICADE [Suspect]
     Active Substance: INFLIXIMAB
     Indication: Crohn^s disease
     Dosage: THE PATIENT HAD 25TH REMICADE INFUSION 300 MG AND PARTIAL HARVEY-BRADSHAW COMPLETED
     Route: 042
     Dates: start: 20170923

REACTIONS (2)
  - Clostridium difficile infection [Not Recovered/Not Resolved]
  - Crohn^s disease [Not Recovered/Not Resolved]

NARRATIVE: CASE EVENT DATE: 20211209
